FAERS Safety Report 24452702 (Version 1)
Quarter: 2024Q4

REPORT INFORMATION
  Report Type: Spontaneous
  Country: US (occurrence: US)
  Receive Date: 20241017
  Receipt Date: 20241017
  Transmission Date: 20250115
  Serious: Yes (Other)
  Sender: BRECKENRIDGE PHARMACEUTICAL, INC.
  Company Number: US-Breckenridge Pharmaceutical, Inc.-2163261

PATIENT
  Sex: Male

DRUGS (1)
  1. DULOXETINE HYDROCHLORIDE [Suspect]
     Active Substance: DULOXETINE HYDROCHLORIDE

REACTIONS (6)
  - Electric shock sensation [Unknown]
  - Drug withdrawal syndrome [Unknown]
  - Nightmare [Unknown]
  - Hallucination [Unknown]
  - Disorientation [Unknown]
  - Nausea [Unknown]
